FAERS Safety Report 25732452 (Version 1)
Quarter: 2025Q3

REPORT INFORMATION
  Report Type: Spontaneous
  Country: US (occurrence: US)
  Receive Date: 20250827
  Receipt Date: 20250827
  Transmission Date: 20251021
  Serious: Yes (Other)
  Sender: AMPHASTAR
  Company Number: US-Amphastar Pharmaceuticals, Inc.-2183344

PATIENT
  Age: 86 Year
  Sex: Male
  Weight: 63.182 kg

DRUGS (1)
  1. BAQSIMI [Suspect]
     Active Substance: GLUCAGON
     Indication: Hypoglycaemia
     Dates: start: 20250810, end: 20250810

REACTIONS (1)
  - Drug ineffective [Recovered/Resolved]

NARRATIVE: CASE EVENT DATE: 20250810
